FAERS Safety Report 23477079 (Version 1)
Quarter: 2024Q1

REPORT INFORMATION
  Report Type: Spontaneous
  Country: CZ (occurrence: CZ)
  Receive Date: 20240204
  Receipt Date: 20240204
  Transmission Date: 20240410
  Serious: No
  Sender: FDA-Public Use
  Company Number: CZ-IPSEN Group, Research and Development-2023-14026

PATIENT
  Sex: Female
  Weight: 85 kg

DRUGS (5)
  1. CABOMETYX [Suspect]
     Active Substance: CABOZANTINIB S-MALATE
     Indication: Renal cell carcinoma
     Dosage: 40 MG, QD
     Route: 065
     Dates: start: 20220715
  2. CABOMETYX [Suspect]
     Active Substance: CABOZANTINIB S-MALATE
     Dosage: 20 MG
     Route: 065
  3. METOPROLOL [Concomitant]
     Active Substance: METOPROLOL
     Indication: Hypertension
     Dosage: 50 MG
     Route: 048
  4. LOZAP [Concomitant]
     Indication: Hypertension
     Dosage: 10 MG
     Route: 048
  5. ANGIOTENSIN BLOCKER [Concomitant]
     Indication: Hypertension
     Dosage: 10 MG
     Route: 048

REACTIONS (2)
  - Skin hypertrophy [Recovered/Resolved]
  - Palmar-plantar erythrodysaesthesia syndrome [Unknown]
